FAERS Safety Report 14122757 (Version 1)
Quarter: 2017Q4

REPORT INFORMATION
  Report Type: Spontaneous
  Country: FR (occurrence: FR)
  Receive Date: 20171024
  Receipt Date: 20171024
  Transmission Date: 20180321
  Serious: Yes (Hospitalization)
  Sender: FDA-Public Use
  Company Number: FR-ROCHE-2010463

PATIENT
  Age: 54 Year
  Sex: Male

DRUGS (8)
  1. XANAX [Concomitant]
     Active Substance: ALPRAZOLAM
  2. AVASTIN [Suspect]
     Active Substance: BEVACIZUMAB
     Indication: GLIOBLASTOMA
     Dosage: SOLUTION TO DILUTE FOR INFUSION
     Route: 042
     Dates: start: 20170727, end: 20170907
  3. VITAMIN D3 [Concomitant]
     Active Substance: CHOLECALCIFEROL
  4. INEXIUM [Concomitant]
     Active Substance: ESOMEPRAZOLE
  5. CALCIUM CARBONATE. [Concomitant]
     Active Substance: CALCIUM CARBONATE
  6. MEDROL [Concomitant]
     Active Substance: METHYLPREDNISOLONE
  7. MUPHORAN [Suspect]
     Active Substance: FOTEMUSTINE
     Indication: PRODUCT USED FOR UNKNOWN INDICATION
     Dosage: POWDER AND SOLUTION TO DILUTE FOR PARENTERAL USE (INFUSION)
     Route: 041
     Dates: start: 20170727, end: 20170907
  8. DIFFU K [Concomitant]
     Active Substance: POTASSIUM CHLORIDE

REACTIONS (4)
  - Hepatitis [Recovering/Resolving]
  - Intentional product use issue [Unknown]
  - Cholestasis [Recovering/Resolving]
  - Off label use [Unknown]

NARRATIVE: CASE EVENT DATE: 20170918
